FAERS Safety Report 5574909-X (Version None)
Quarter: 2007Q4

REPORT INFORMATION
  Report Type: 
  Country: None (occurrence: None)
  Receive Date: 20071227
  Receipt Date: 20071219
  Transmission Date: 20080405
  Serious: Yes (Life-Threatening, Hospitalization)
  Sender: FDA-Public Use
  Company Number: DK-JNJFOC-20071200782

PATIENT
  Age: 27 Year
  Sex: Male
  Weight: 57 kg

DRUGS (3)
  1. RISPERDAL CONSTA [Suspect]
     Indication: SCHIZOPHRENIA
     Route: 030
  2. RISPERIDONE [Suspect]
     Indication: SCHIZOPHRENIA
     Route: 048
  3. FENEMAL [Concomitant]

REACTIONS (3)
  - AGGRESSION [None]
  - PARANOIA [None]
  - SUICIDAL IDEATION [None]
